FAERS Safety Report 15271363 (Version 1)
Quarter: 2018Q3

REPORT INFORMATION
  Report Type: Spontaneous
  Country: FR (occurrence: FR)
  Receive Date: 20180813
  Receipt Date: 20180813
  Transmission Date: 20181010
  Serious: Yes (Other)
  Sender: FDA-Public Use
  Company Number: FR-PFIZER INC-2018322116

PATIENT
  Age: 58 Year
  Sex: Female
  Weight: 35.2 kg

DRUGS (4)
  1. FLUCONAZOLE. [Suspect]
     Active Substance: FLUCONAZOLE
     Indication: ORAL FUNGAL INFECTION
     Dosage: 1 DF, 1X/DAY
     Route: 048
     Dates: start: 20180215, end: 20180301
  2. CEFTAZIDIME ARROW [Suspect]
     Active Substance: CEFTAZIDIME
     Indication: FEBRILE BONE MARROW APLASIA
     Dosage: 1 DF, 1X/DAY
     Route: 042
     Dates: start: 20180222, end: 20180303
  3. CLAMOXYL /00249601/ [Suspect]
     Active Substance: AMOXICILLIN
     Indication: TOOTH ABSCESS
     Dosage: 1 DF, 1X/DAY
     Route: 048
     Dates: start: 20180207, end: 20180214
  4. VANCOMYCINE SANDOZ [Suspect]
     Active Substance: VANCOMYCIN
     Indication: FEBRILE BONE MARROW APLASIA
     Dosage: 1 DF, 1X/DAY
     Route: 042
     Dates: start: 20180215, end: 20180302

REACTIONS (1)
  - Drug reaction with eosinophilia and systemic symptoms [Recovered/Resolved]

NARRATIVE: CASE EVENT DATE: 20180306
